FAERS Safety Report 10366479 (Version 1)
Quarter: 2014Q3

REPORT INFORMATION
  Report Type: Spontaneous
  Country: CA (occurrence: None)
  Receive Date: 20140804
  Receipt Date: 20140804
  Transmission Date: 20150326
  Serious: Yes (Other)
  Sender: FDA-Public Use
  Company Number: AMAG201400278

PATIENT
  Age: 44 Year
  Sex: Male

DRUGS (1)
  1. FERAHEME [Suspect]
     Active Substance: FERUMOXYTOL NON-STOICHIOMETRIC MAGNETITE
     Indication: ANAEMIA
     Dosage: UNK UNK, SINGLE, INFUSION
     Dates: start: 20140508, end: 20140508

REACTIONS (4)
  - Dyspnoea [None]
  - Oxygen saturation decreased [None]
  - Blood pressure increased [None]
  - Swelling face [None]

NARRATIVE: CASE EVENT DATE: 20140508
